FAERS Safety Report 7684756 (Version 4)
Quarter: 2013Q3

REPORT INFORMATION
  Report Type: Spontaneous
  Country: US (occurrence: US)
  Receive Date: 20101129
  Receipt Date: 20130816
  Transmission Date: 20140515
  Serious: Yes (Other)
  Sender: FDA-Public Use
  Company Number: US-ROCHE-722940

PATIENT
  Age: 17 Year
  Sex: Male
  Weight: 101.6 kg

DRUGS (8)
  1. ACCUTANE [Suspect]
     Indication: ACNE
     Route: 048
  2. ACCUTANE [Suspect]
     Dosage: 40 MG ALTERNATING WITH 80 MG
     Route: 048
  3. ACCUTANE [Suspect]
     Route: 048
     Dates: start: 19940114, end: 1995
  4. ACCUTANE [Suspect]
     Route: 048
  5. MINOCIN [Concomitant]
     Route: 048
  6. BENZAC AC [Concomitant]
     Route: 065
  7. CLEOCIN T [Concomitant]
     Route: 065
  8. RETIN A CREAM [Concomitant]

REACTIONS (5)
  - Crohn^s disease [Unknown]
  - Gastrointestinal injury [Unknown]
  - Haemorrhoids [Unknown]
  - Rash maculo-papular [Unknown]
  - Scar [Unknown]
